FAERS Safety Report 7100707-1 (Version None)
Quarter: 2010Q4

REPORT INFORMATION
  Report Type: 
  Country: None (occurrence: None)
  Receive Date: 20101113
  Receipt Date: 20100303
  Transmission Date: 20110411
  Serious: No
  Sender: FDA-Public Use
  Company Number: US-ALLERGAN-1002837US

PATIENT
  Age: 52 Year
  Sex: Female
  Weight: 68.027 kg

DRUGS (1)
  1. BOTOXA? [Suspect]
     Indication: MIGRAINE
     Dosage: 25 UNITS, SINGLE
     Dates: start: 20091204, end: 20091204

REACTIONS (1)
  - EYELID OEDEMA [None]
